FAERS Safety Report 19253419 (Version 1)
Quarter: 2021Q2

REPORT INFORMATION
  Report Type: Spontaneous
  Country: US (occurrence: US)
  Receive Date: 20210513
  Receipt Date: 20210513
  Transmission Date: 20210717
  Serious: No
  Sender: FDA-Public Use
  Company Number: None

PATIENT
  Age: 32 Year
  Sex: Male
  Weight: 81 kg

DRUGS (2)
  1. DYNAPEN [Suspect]
     Active Substance: DICLOXACILLIN SODIUM
     Indication: SKIN INFECTION
     Dosage: ?          QUANTITY:1 CAPSULE(S);?
     Route: 048
     Dates: start: 20210505, end: 20210511
  2. DUTASTERIDE. [Concomitant]
     Active Substance: DUTASTERIDE

REACTIONS (1)
  - Chest discomfort [None]

NARRATIVE: CASE EVENT DATE: 20210509
